FAERS Safety Report 5528683-3 (Version None)
Quarter: 2007Q4

REPORT INFORMATION
  Report Type: 
  Country: None (occurrence: None)
  Receive Date: 20071129
  Receipt Date: 20071119
  Transmission Date: 20080405
  Serious: Yes (Other)
  Sender: FDA-Public Use
  Company Number: PHBS2007IT19567

PATIENT
  Age: 31 Year
  Sex: Male

DRUGS (1)
  1. SANDIMMUNE [Suspect]
     Indication: PSORIASIS
     Dosage: 200 MG/DAY
     Route: 048
     Dates: start: 20070727, end: 20070826

REACTIONS (2)
  - DISORIENTATION [None]
  - HYPERTENSIVE CRISIS [None]
